FAERS Safety Report 12569385 (Version 1)
Quarter: 2016Q3

REPORT INFORMATION
  Report Type: Spontaneous
  Country: US (occurrence: None)
  Receive Date: 20160718
  Receipt Date: 20160718
  Transmission Date: 20161109
  Serious: No
  Sender: FDA-Public Use
  Company Number: None

PATIENT
  Age: 55 Year
  Sex: Female

DRUGS (1)
  1. VIVITROL [Suspect]
     Active Substance: NALTREXONE
     Indication: DRUG DEPENDENCE
     Route: 030
     Dates: start: 20160510

REACTIONS (5)
  - Peripheral swelling [None]
  - Injection site reaction [None]
  - Skin lesion [None]
  - Skin warm [None]
  - Injection site pain [None]

NARRATIVE: CASE EVENT DATE: 201607
